FAERS Safety Report 23060510 (Version 2)
Quarter: 2023Q4

REPORT INFORMATION
  Report Type: Spontaneous
  Country: AT (occurrence: AT)
  Receive Date: 20231012
  Receipt Date: 20231024
  Transmission Date: 20240109
  Serious: Yes (Other)
  Sender: FDA-Public Use
  Company Number: AT-AMERICAN REGENT INC-2023002377

PATIENT
  Age: 33 Year
  Sex: Female
  Weight: 51 kg

DRUGS (2)
  1. VENOFER [Suspect]
     Active Substance: IRON SUCROSE
     Indication: Product used for unknown indication
     Dosage: UNK; 4 DOSAGE FORMS (FIRST 4 INFUSIONS) (1 IN 1 M)
     Dates: start: 202210
  2. VENOFER [Suspect]
     Active Substance: IRON SUCROSE
     Dosage: UNK; 1 IN 1 TOTAL
     Dates: start: 202301, end: 202301

REACTIONS (26)
  - Mast cell activation syndrome [Recovered/Resolved]
  - Urticaria [Recovered/Resolved]
  - Hypersensitivity [Recovered/Resolved]
  - Dizziness [Recovered/Resolved]
  - Swelling face [Recovered/Resolved]
  - Heart rate irregular [Recovered/Resolved]
  - Flatulence [Recovered/Resolved]
  - Vitreous floaters [Recovered/Resolved]
  - Dyspepsia [Recovered/Resolved]
  - Initial insomnia [Recovered/Resolved]
  - Eye swelling [Recovered/Resolved]
  - Hot flush [Recovered/Resolved]
  - Palpitations [Recovered/Resolved]
  - Erythema [Recovered/Resolved]
  - Constipation [Recovered/Resolved]
  - Paraesthesia [Recovered/Resolved]
  - Chills [Recovered/Resolved]
  - Hyperhidrosis [Recovered/Resolved]
  - Asthenia [Recovered/Resolved]
  - Abdominal pain [Recovered/Resolved]
  - Abdominal pain upper [Recovered/Resolved]
  - Nausea [Recovered/Resolved]
  - Blood pressure decreased [Recovered/Resolved]
  - Pain in extremity [Recovered/Resolved]
  - Pruritus [Recovered/Resolved]
  - Pyrexia [Recovered/Resolved]

NARRATIVE: CASE EVENT DATE: 20221001
